FAERS Safety Report 17093389 (Version 1)
Quarter: 2019Q4

REPORT INFORMATION
  Report Type: Report from Study
  Country: US (occurrence: US)
  Receive Date: 20191129
  Receipt Date: 20191129
  Transmission Date: 20200122
  Serious: Yes (Other)
  Sender: FDA-Public Use
  Company Number: NVSC2019US046295

PATIENT
  Sex: Female

DRUGS (1)
  1. KISQALI [Suspect]
     Active Substance: RIBOCICLIB
     Indication: PRODUCT USED FOR UNKNOWN INDICATION
     Route: 048

REACTIONS (8)
  - Bone pain [Unknown]
  - Psoriasis [Unknown]
  - Migraine [Unknown]
  - Emotional distress [Unknown]
  - Ulcer [Unknown]
  - Skin exfoliation [Unknown]
  - Pruritus [Unknown]
  - Gallbladder hypofunction [Unknown]
